FAERS Safety Report 21964779 (Version 1)
Quarter: 2023Q1

REPORT INFORMATION
  Report Type: Spontaneous
  Country: US (occurrence: US)
  Receive Date: 20230207
  Receipt Date: 20230207
  Transmission Date: 20230417
  Serious: No
  Sender: FDA-Public Use
  Company Number: US-Santen Inc-2023-USA-000615

PATIENT
  Age: 53 Year
  Sex: Female

DRUGS (1)
  1. NATACYN [Suspect]
     Active Substance: NATAMYCIN
     Indication: Product used for unknown indication
     Route: 047

REACTIONS (2)
  - Product dose omission issue [Unknown]
  - Product delivery mechanism issue [Unknown]

NARRATIVE: CASE EVENT DATE: 20230118
